FAERS Safety Report 14239119 (Version 2)
Quarter: 2017Q4

REPORT INFORMATION
  Report Type: Spontaneous
  Country: BE (occurrence: BE)
  Receive Date: 20171130
  Receipt Date: 20171218
  Transmission Date: 20180321
  Serious: Yes (Death)
  Sender: FDA-Public Use
  Company Number: BE-NOVOPROD-573684

PATIENT
  Age: 68 Year
  Sex: Male

DRUGS (2)
  1. MULTIHANCE [Suspect]
     Active Substance: GADOBENATE DIMEGLUMINE
     Indication: SCAN WITH CONTRAST
     Dosage: 12 ML TO 2 ML/SEC - NUMBER OF UNITS IN THE INTERVAL: 1 - DEF OF TIME INTERVAL UNIT: TOTAL - IV DRIP
     Route: 042
     Dates: start: 20171025, end: 20171025
  2. GLUCAGEN HYPOKIT [Suspect]
     Active Substance: GLUCAGON HYDROCHLORIDE
     Indication: HYPOGLYCAEMIA
     Dosage: 1 VIAL-DOSE: 1 - NUMBER OF UNITS IN THE INTERVAL: 1 - DEF OF TIME INTERVAL UNIT: TOTAL
     Route: 042
     Dates: start: 20171025, end: 20171025

REACTIONS (2)
  - Anaphylactic shock [Fatal]
  - Cardiac arrest [Fatal]

NARRATIVE: CASE EVENT DATE: 20171025
